FAERS Safety Report 10174890 (Version 2)
Quarter: 2014Q2

REPORT INFORMATION
  Report Type: Report from Study
  Country: FR (occurrence: FR)
  Receive Date: 20140515
  Receipt Date: 20140623
  Transmission Date: 20141212
  Serious: Yes (Other)
  Sender: FDA-Public Use
  Company Number: FR-BRISTOL-MYERS SQUIBB COMPANY-20752275

PATIENT
  Age: 69 Year
  Sex: Male
  Weight: 54 kg

DRUGS (6)
  1. SPRYCEL (CML) TABS 100 MG [Suspect]
     Indication: CHRONIC MYELOID LEUKAEMIA
     Dosage: 01AUG12 TO 29NOV12,30NOV12 THE DOSAGE WAS REDUCED TO 80 MG/DAY, LAST DOSE :26MAR13
     Route: 048
     Dates: start: 20120801, end: 20130326
  2. GLIVEC [Suspect]
     Indication: CHRONIC MYELOID LEUKAEMIA
     Route: 048
     Dates: start: 20130618, end: 20140217
  3. AMLOR [Concomitant]
     Indication: HYPERTENSION
     Route: 048
  4. RAMIPRIL [Concomitant]
     Indication: HYPERTENSION
     Route: 048
  5. CRESTOR [Concomitant]
     Indication: DYSLIPIDAEMIA
     Dosage: INITIALLY 10 MG
     Route: 048
     Dates: start: 2013
  6. KARDEGIC [Concomitant]
     Indication: ISCHAEMIC CARDIOMYOPATHY
     Route: 048

REACTIONS (3)
  - Lung adenocarcinoma metastatic [Not Recovered/Not Resolved]
  - Pericardial effusion [Not Recovered/Not Resolved]
  - Pleural effusion [Unknown]
